FAERS Safety Report 7424952-0 (Version None)
Quarter: 2011Q2

REPORT INFORMATION
  Report Type: 
  Country: None (occurrence: None)
  Receive Date: 20110419
  Receipt Date: 20110415
  Transmission Date: 20111010
  Serious: Yes (Hospitalization)
  Sender: FDA-Public Use
  Company Number: PHHO2010CN13398

PATIENT
  Sex: Female
  Weight: 60 kg

DRUGS (1)
  1. EVEROLIMUS [Suspect]
     Indication: METASTATIC RENAL CELL CARCINOMA
     Dosage: 10 MG, QD
     Route: 048
     Dates: start: 20100710, end: 20100904

REACTIONS (5)
  - NEOPLASM MALIGNANT [None]
  - HYPOXIA [None]
  - PNEUMONIA [None]
  - DYSPNOEA [None]
  - PYREXIA [None]
